FAERS Safety Report 9631111 (Version 1)
Quarter: 2013Q4

REPORT INFORMATION
  Report Type: Spontaneous
  Country: GB (occurrence: None)
  Receive Date: 20131015
  Receipt Date: 20131015
  Transmission Date: 20140711
  Serious: Yes (Other)
  Sender: FDA-Public Use
  Company Number: KAD201310-001335

PATIENT
  Age: 58 Year
  Sex: Female

DRUGS (3)
  1. RIBAVIRIN (RIBAVIRIN) [Suspect]
     Indication: HEPATITIS C
     Route: 048
     Dates: start: 201301
  2. PEGINTERFERON ALFA-2B (PEGINTERFERON ALFA-2B) [Suspect]
     Indication: HEPATITIS C
     Dosage: INJECTION, ONCE WEEKLY
     Dates: start: 201301
  3. INCIVO (TELAPREVIR) [Suspect]
     Indication: HEPATITIS C
     Dosage: THRICE DAILY
     Dates: start: 20130118, end: 20130407

REACTIONS (7)
  - Anaemia [None]
  - Skin infection [None]
  - Rash generalised [None]
  - Pain [None]
  - Rash erythematous [None]
  - Skin hypertrophy [None]
  - Joint swelling [None]
